FAERS Safety Report 8511557-3 (Version None)
Quarter: 2012Q3

REPORT INFORMATION
  Report Type: 
  Country: None (occurrence: None)
  Receive Date: 20120716
  Receipt Date: 20120703
  Transmission Date: 20120928
  Serious: Yes (Hospitalization)
  Sender: FDA-Public Use
  Company Number: GB-SANOFI-AVENTIS-2012SA041355

PATIENT
  Sex: Male

DRUGS (10)
  1. INVESTIGATIONAL DRUG [Suspect]
     Indication: NON-SMALL CELL LUNG CANCER STAGE IV
     Route: 042
     Dates: start: 20120312, end: 20120312
  2. INVESTIGATIONAL DRUG [Suspect]
     Route: 042
     Dates: start: 20120425, end: 20120425
  3. TAXOTERE [Suspect]
     Indication: NON-SMALL CELL LUNG CANCER STAGE IV
     Route: 041
     Dates: start: 20120312, end: 20120312
  4. TAXOTERE [Suspect]
     Route: 041
     Dates: start: 20120425, end: 20120425
  5. DEXAMETHASONE [Concomitant]
     Indication: PREMEDICATION
     Dates: start: 20120424
  6. CHLORPHENIRAMINE TAB [Concomitant]
     Indication: PREMEDICATION
     Dates: start: 20120425, end: 20120425
  7. OMEPRAZOLE [Concomitant]
  8. LOPERAMIDE [Concomitant]
  9. CORTICOSTEROIDS [Concomitant]
  10. ACETAMINOPHEN [Concomitant]

REACTIONS (2)
  - OEDEMA PERIPHERAL [None]
  - DYSPNOEA [None]
